FAERS Safety Report 4998460-0 (Version None)
Quarter: 2006Q2

REPORT INFORMATION
  Report Type: 
  Country: None (occurrence: None)
  Receive Date: 20060508
  Receipt Date: 20060425
  Transmission Date: 20061013
  Serious: Yes (Hospitalization)
  Sender: FDA-Public Use
  Company Number: 2006056271

PATIENT
  Age: 74 Year
  Sex: Female
  Weight: 73.1 kg

DRUGS (1)
  1. SUTENT [Suspect]
     Indication: RENAL CELL CARCINOMA STAGE UNSPECIFIED
     Dosage: 50 MG (50 MG DAILY-INTERVAL : CYCLIC) ORAL
     Route: 048
     Dates: start: 20060310

REACTIONS (1)
  - FALL [None]
